FAERS Safety Report 9594595 (Version 1)
Quarter: 2013Q3

REPORT INFORMATION
  Report Type: Spontaneous
  Country: US (occurrence: None)
  Receive Date: 20130923
  Receipt Date: 20130923
  Transmission Date: 20140515
  Serious: Yes (Hospitalization)
  Sender: FDA-Public Use
  Company Number: 2012ST000674

PATIENT
  Age: 27 Year
  Sex: Female

DRUGS (1)
  1. MATULANE [Suspect]
     Indication: PRODUCT USED FOR UNKNOWN INDICATION
     Route: 048
     Dates: start: 20100711

REACTIONS (2)
  - Pneumonia [None]
  - Pleural neoplasm [None]
